FAERS Safety Report 4393522-3 (Version None)
Quarter: 2004Q3

REPORT INFORMATION
  Report Type: 
  Country: None (occurrence: None)
  Receive Date: 20040701
  Receipt Date: 20040618
  Transmission Date: 20050211
  Serious: Yes (Other)
  Sender: FDA-Public Use
  Company Number: 200410466BCA

PATIENT
  Age: 67 Year
  Sex: Female

DRUGS (12)
  1. ASPIRIN [Suspect]
     Dosage: 160 MG, TOTAL DAILY,
  2. HEPARIN [Suspect]
  3. INTEGRILIN [Suspect]
     Dosage: INTRAVENOUS
     Route: 042
  4. DILANTIN /CAN/ [Concomitant]
  5. DIOVAN [Concomitant]
  6. K-DUR 10 [Concomitant]
  7. LIPITOR [Concomitant]
  8. LOVENOX [Concomitant]
  9. METOPROLOL [Concomitant]
  10. NITROGLYCERIN [Concomitant]
  11. RAMIPRIL [Concomitant]
  12. VALIUM [Concomitant]

REACTIONS (4)
  - ANGIOPATHY [None]
  - CONTUSION [None]
  - GROIN PAIN [None]
  - HAEMATOMA [None]
